FAERS Safety Report 9308587 (Version 1)
Quarter: 2013Q2

REPORT INFORMATION
  Report Type: Spontaneous
  Country: GB (occurrence: GB)
  Receive Date: 20130524
  Receipt Date: 20130524
  Transmission Date: 20140414
  Serious: Yes (Death, Other)
  Sender: FDA-Public Use
  Company Number: GB-CELGENEUS-167-21880-13043063

PATIENT
  Age: 75 Year
  Sex: Male
  Weight: 60 kg

DRUGS (9)
  1. REVLIMID [Suspect]
     Indication: 5Q MINUS SYNDROME
     Dosage: 10 MILLIGRAM
     Route: 048
     Dates: start: 20110817, end: 20120911
  2. REVLIMID [Suspect]
     Indication: OFF LABEL USE
     Route: 048
  3. WARFARIN [Concomitant]
     Indication: PULMONARY EMBOLISM
     Dosage: VARIABLE
     Route: 065
     Dates: start: 201109, end: 20120918
  4. OMEPRAZOLE [Concomitant]
     Indication: PRODUCT USED FOR UNKNOWN INDICATION
     Dosage: 20 MILLIGRAM
     Route: 065
  5. ALLOPURINOL [Concomitant]
     Indication: GOUT
     Dosage: 200 MILLIGRAM
     Route: 065
  6. CITALOPRAM [Concomitant]
     Indication: PRODUCT USED FOR UNKNOWN INDICATION
     Dosage: 20 MILLIGRAM
     Route: 065
  7. ZOPICLONE [Concomitant]
     Indication: PRODUCT USED FOR UNKNOWN INDICATION
     Dosage: 3.75 MILLIGRAM
     Route: 065
  8. TRANEXAMIC ACID [Concomitant]
     Indication: EPISTAXIS
     Dosage: 1500 MILLIGRAM
     Route: 065
  9. TRANEXAMIC ACID [Concomitant]
     Indication: GINGIVAL BLEEDING

REACTIONS (1)
  - Acute myeloid leukaemia [Fatal]
